FAERS Safety Report 15105201 (Version 1)
Quarter: 2018Q3

REPORT INFORMATION
  Report Type: Spontaneous
  Country: US (occurrence: US)
  Receive Date: 20180704
  Receipt Date: 20180704
  Transmission Date: 20181010
  Serious: No
  Sender: FDA-Public Use
  Company Number: US-AUROBINDO-AUR-APU-2017-42907

PATIENT
  Sex: Female

DRUGS (1)
  1. CLOPIDOGREL [Suspect]
     Active Substance: CLOPIDOGREL BISULFATE
     Indication: MYOCARDIAL INFARCTION
     Dosage: 75 MG, ONCE A DAY
     Route: 065
     Dates: start: 20171011

REACTIONS (3)
  - Product odour abnormal [Recovered/Resolved]
  - Abdominal pain upper [Recovered/Resolved]
  - Product substitution issue [Unknown]
